FAERS Safety Report 10028385 (Version 2)
Quarter: 2014Q2

REPORT INFORMATION
  Report Type: Spontaneous
  Country: CA (occurrence: CA)
  Receive Date: 20140321
  Receipt Date: 20140401
  Transmission Date: 20141212
  Serious: Yes (Hospitalization)
  Sender: FDA-Public Use
  Company Number: CA-PFIZER INC-2014080441

PATIENT
  Age: 26 Year
  Sex: Female

DRUGS (2)
  1. ATENOLOL [Suspect]
     Indication: HYPERTROPHIC CARDIOMYOPATHY
     Dosage: 100 MG, 1X/DAY
  2. FERROUS SULPHATE [Suspect]
     Dosage: UNK
     Route: 065

REACTIONS (1)
  - Ventricular tachycardia [Recovered/Resolved]
